FAERS Safety Report 17256454 (Version 1)
Quarter: 2020Q1

REPORT INFORMATION
  Report Type: Spontaneous
  Country: US (occurrence: US)
  Receive Date: 20200110
  Receipt Date: 20200110
  Transmission Date: 20200409
  Serious: No
  Sender: FDA-Public Use
  Company Number: US-MYLANLABS-2020M1000057

PATIENT
  Sex: Female
  Weight: 45 kg

DRUGS (1)
  1. WIXELA INHUB [Suspect]
     Active Substance: FLUTICASONE PROPIONATE\SALMETEROL XINAFOATE
     Indication: CHRONIC OBSTRUCTIVE PULMONARY DISEASE
     Dosage: TWICE DAILY
     Route: 048

REACTIONS (4)
  - Drug ineffective [Not Recovered/Not Resolved]
  - Incorrect dose administered [Unknown]
  - Dysgeusia [Recovered/Resolved]
  - Wrong technique in product usage process [Recovered/Resolved]
